FAERS Safety Report 23869975 (Version 1)
Quarter: 2024Q2

REPORT INFORMATION
  Report Type: Spontaneous
  Country: US (occurrence: US)
  Receive Date: 20240517
  Receipt Date: 20240517
  Transmission Date: 20240716
  Serious: No
  Sender: FDA-Public Use
  Company Number: US-SA-SAC20240514000143

PATIENT
  Age: 29 Year
  Sex: Male

DRUGS (3)
  1. ELOCTATE [Suspect]
     Active Substance: EFMOROCTOCOG ALFA
     Indication: Factor VIII deficiency
     Dosage: 3000 U, BIW
     Route: 042
     Dates: start: 202301
  2. ELOCTATE [Suspect]
     Active Substance: EFMOROCTOCOG ALFA
     Indication: Factor VIII deficiency
     Dosage: 3000 U, BIW
     Route: 042
     Dates: start: 202301
  3. EMICIZUMAB [Concomitant]
     Active Substance: EMICIZUMAB
     Dosage: UNK

REACTIONS (1)
  - Haemorrhage [Recovered/Resolved]
